FAERS Safety Report 6109543-6 (Version None)
Quarter: 2009Q1

REPORT INFORMATION
  Report Type: 
  Country: None (occurrence: None)
  Receive Date: 20090306
  Receipt Date: 20090219
  Transmission Date: 20090719
  Serious: Yes (Death)
  Sender: FDA-Public Use
  Company Number: URSO-2008-144FUP#1

PATIENT
  Sex: Female

DRUGS (1)
  1. URSO FORTE [Suspect]

REACTIONS (1)
  - DEATH [None]
